FAERS Safety Report 25792480 (Version 1)
Quarter: 2025Q3

REPORT INFORMATION
  Report Type: Spontaneous
  Country: US (occurrence: US)
  Receive Date: 20250911
  Receipt Date: 20250911
  Transmission Date: 20251021
  Serious: Yes (Hospitalization)
  Sender: AMGEN
  Company Number: US-AMGEN-USASP2025180626

PATIENT
  Age: 83 Year
  Sex: Male

DRUGS (3)
  1. PROLIA [Suspect]
     Active Substance: DENOSUMAB
     Indication: Pathological fracture prophylaxis
     Route: 065
  2. CALCIUM [Concomitant]
     Active Substance: CALCIUM
  3. CALCIUM [Concomitant]
     Active Substance: CALCIUM
     Route: 040

REACTIONS (2)
  - Hypocalcaemia [Recovered/Resolved]
  - Mental status changes [Unknown]
